FAERS Safety Report 11294889 (Version 1)
Quarter: 2015Q3

REPORT INFORMATION
  Report Type: Report from Study
  Country: BR (occurrence: BR)
  Receive Date: 20150723
  Receipt Date: 20150723
  Transmission Date: 20151125
  Serious: Yes (Other)
  Sender: FDA-Public Use
  Company Number: BR-ROCHE-1567938

PATIENT
  Age: 74 Year
  Sex: Female
  Weight: 54 kg

DRUGS (9)
  1. RIVOTRIL [Suspect]
     Active Substance: CLONAZEPAM
     Indication: SLEEP DISORDER THERAPY
     Route: 065
  2. ACTEMRA [Suspect]
     Active Substance: TOCILIZUMAB
     Indication: RHEUMATOID ARTHRITIS
     Route: 042
     Dates: start: 20150401, end: 20150601
  3. CORTISONE [Concomitant]
     Active Substance: CORTISONE\HYDROCORTISONE
     Route: 065
  4. LOSARTAN. [Concomitant]
     Active Substance: LOSARTAN
     Route: 065
  5. HYDROCHLOROTHIAZIDE. [Concomitant]
     Active Substance: HYDROCHLOROTHIAZIDE
     Route: 065
  6. NPH INSULIN [Concomitant]
     Active Substance: INSULIN BEEF
     Route: 065
  7. HYDROCORTISONE. [Concomitant]
     Active Substance: HYDROCORTISONE
  8. ALENDRONATE SODIUM. [Concomitant]
     Active Substance: ALENDRONATE SODIUM
     Route: 065
  9. DEPURA [Concomitant]
     Active Substance: CHOLECALCIFEROL
     Route: 065

REACTIONS (7)
  - Therapeutic response decreased [Unknown]
  - Eye swelling [Not Recovered/Not Resolved]
  - Depression [Unknown]
  - Dysstasia [Not Recovered/Not Resolved]
  - Osteoarthritis [Unknown]
  - Pneumonia [Not Recovered/Not Resolved]
  - Ocular hyperaemia [Not Recovered/Not Resolved]

NARRATIVE: CASE EVENT DATE: 20150707
